FAERS Safety Report 9543665 (Version 7)
Quarter: 2014Q1

REPORT INFORMATION
  Report Type: Spontaneous
  Country: US (occurrence: US)
  Receive Date: 20130923
  Receipt Date: 20140221
  Transmission Date: 20141002
  Serious: Yes (Hospitalization, Disabling, Other)
  Sender: FDA-Public Use
  Company Number: US-009507513-1205USA04984

PATIENT
  Sex: Female
  Weight: 72.56 kg

DRUGS (14)
  1. FOSAMAX [Suspect]
     Indication: OSTEOPENIA
     Dosage: 70 MG, QW
     Route: 048
     Dates: end: 2008
  2. FOSAMAX [Suspect]
     Indication: OSTEOPOROSIS
     Dosage: UNK
     Route: 048
     Dates: start: 199705, end: 19980504
  3. FOSAMAX PLUS D [Suspect]
     Indication: OSTEOPENIA
     Dosage: 70 MG, QW
     Route: 048
     Dates: end: 2008
  4. FOSAMAX PLUS D [Suspect]
     Indication: OSTEOPOROSIS
  5. PREMARIN [Concomitant]
  6. NAPROSYN [Concomitant]
  7. ULTRAM [Concomitant]
  8. TUMS [Concomitant]
  9. ATARAX (HYDROXYZINE HYDROCHLORIDE) [Concomitant]
     Indication: DERMATITIS ALLERGIC
     Dosage: 20 MG, TID
  10. ATARAX (HYDROXYZINE HYDROCHLORIDE) [Concomitant]
     Dosage: 40 MG, TID
  11. ATARAX (HYDROXYZINE HYDROCHLORIDE) [Concomitant]
     Dosage: 50 MG, QID
  12. SARNA [Concomitant]
     Indication: DERMATITIS ALLERGIC
     Dosage: 1-2 TIMES A DAY
     Route: 061
  13. ARISTOCORT (TRIAMCINOLONE) [Concomitant]
     Indication: DERMATITIS ALLERGIC
     Dosage: 1-2 TIMES A DAY
     Route: 061
  14. CALCIUM (UNSPECIFIED) (+) VITAMIN D (UNSPECIFIED) [Concomitant]
     Indication: OSTEOPOROSIS
     Dosage: BID

REACTIONS (48)
  - Femur fracture [Unknown]
  - Intramedullary rod insertion [Unknown]
  - Fracture nonunion [Unknown]
  - Bone graft [Unknown]
  - Internal fixation of fracture [Unknown]
  - Fracture nonunion [Unknown]
  - Hip arthroplasty [Unknown]
  - Carpal tunnel decompression [Unknown]
  - Carpal tunnel decompression [Unknown]
  - Spinal operation [Unknown]
  - Scoliosis surgery [Unknown]
  - Knee arthroplasty [Unknown]
  - Hip arthroplasty [Unknown]
  - Cystopexy [Unknown]
  - Depression [Unknown]
  - Fracture nonunion [Unknown]
  - Vitamin D deficiency [Unknown]
  - Calcium deficiency [Unknown]
  - Rheumatoid arthritis [Unknown]
  - Biopsy breast [Unknown]
  - Biopsy breast [Unknown]
  - Complex regional pain syndrome [Unknown]
  - Hypertension [Unknown]
  - Cellulitis [Recovered/Resolved]
  - Inflammation [Recovered/Resolved]
  - Osteoarthritis [Unknown]
  - Anaemia postoperative [Unknown]
  - Device breakage [Unknown]
  - Medical device removal [Unknown]
  - Device failure [Unknown]
  - Device breakage [Unknown]
  - Haemoglobin decreased [Unknown]
  - Decreased appetite [Unknown]
  - Blood glucose decreased [Recovered/Resolved]
  - Intervertebral disc degeneration [Unknown]
  - Fibrocystic breast disease [Unknown]
  - Large intestine polyp [Recovered/Resolved]
  - Diastolic dysfunction [Unknown]
  - Localised infection [Recovered/Resolved]
  - Enostosis [Unknown]
  - Facet joint syndrome [Unknown]
  - Salivary gland operation [Unknown]
  - Neuropathy peripheral [Unknown]
  - Benign hepatic neoplasm [Unknown]
  - Bladder prolapse [Unknown]
  - Scoliosis [Unknown]
  - Back pain [Not Recovered/Not Resolved]
  - Oedema peripheral [Not Recovered/Not Resolved]
